FAERS Safety Report 13714178 (Version 1)
Quarter: 2017Q3

REPORT INFORMATION
  Report Type: Spontaneous
  Country: LK (occurrence: LK)
  Receive Date: 20170704
  Receipt Date: 20170704
  Transmission Date: 20171127
  Serious: Yes (Hospitalization)
  Sender: FDA-Public Use
  Company Number: LK-MYLANLABS-2017M1039264

PATIENT

DRUGS (4)
  1. TACROLIMUS. [Suspect]
     Active Substance: TACROLIMUS
     Indication: NEPHROTIC SYNDROME
     Route: 065
  2. MYCOPHENOLATE MOFETIL. [Suspect]
     Active Substance: MYCOPHENOLATE MOFETIL
     Indication: NEPHROTIC SYNDROME
     Route: 065
  3. PREDNISOLONE. [Suspect]
     Active Substance: PREDNISOLONE
     Indication: NEPHROTIC SYNDROME
     Dosage: 10MG
     Route: 065
  4. ISONIAZID. [Concomitant]
     Active Substance: ISONIAZID
     Dosage: 300MG; RECEIVING SINCE 8 MONTHS
     Route: 065

REACTIONS (6)
  - Seizure [Recovering/Resolving]
  - Cerebral infarction [Recovering/Resolving]
  - Cushingoid [Unknown]
  - Basal ganglia infarction [Recovering/Resolving]
  - Tuberculosis of central nervous system [Recovering/Resolving]
  - Vasculitis cerebral [Recovering/Resolving]
